FAERS Safety Report 8303748-1 (Version None)
Quarter: 2012Q2

REPORT INFORMATION
  Report Type: 
  Country: None (occurrence: None)
  Receive Date: 20120420
  Receipt Date: 20120420
  Transmission Date: 20120825
  Serious: Yes (Hospitalization)
  Sender: FDA-Public Use
  Company Number: None

PATIENT
  Age: 65 Year
  Sex: Male

DRUGS (1)
  1. MINOXIDIL [Suspect]
     Dosage: 2.5 MG EVERY DAY PO
     Route: 048
     Dates: start: 20081120, end: 20081123

REACTIONS (4)
  - ARTHRALGIA [None]
  - TENDONITIS [None]
  - MUSCULOSKELETAL STIFFNESS [None]
  - BLOOD PRESSURE INADEQUATELY CONTROLLED [None]
